FAERS Safety Report 17656450 (Version 1)
Quarter: 2020Q2

REPORT INFORMATION
  Report Type: Spontaneous
  Country: CA (occurrence: CA)
  Receive Date: 20200410
  Receipt Date: 20200410
  Transmission Date: 20200713
  Serious: Yes (Other)
  Sender: FDA-Public Use
  Company Number: CA-SAMSUNG BIOEPIS-SB-2020-11687

PATIENT
  Age: 31 Year
  Sex: Male
  Weight: 87 kg

DRUGS (1)
  1. INFLIXIMAB [Suspect]
     Active Substance: INFLIXIMAB
     Indication: CROHN^S DISEASE
     Route: 042

REACTIONS (10)
  - Tooth infection [Unknown]
  - Off label use [Unknown]
  - Condition aggravated [Unknown]
  - Arthralgia [Unknown]
  - Tooth abscess [Unknown]
  - Incorrect dose administered [Unknown]
  - Drug ineffective [Unknown]
  - Aphthous ulcer [Unknown]
  - Pyoderma gangrenosum [Unknown]
  - Erythema nodosum [Unknown]
